FAERS Safety Report 14623783 (Version 1)
Quarter: 2018Q1

REPORT INFORMATION
  Report Type: Spontaneous
  Country: US (occurrence: US)
  Receive Date: 20180309
  Receipt Date: 20180309
  Transmission Date: 20180509
  Serious: Yes (Hospitalization)
  Sender: FDA-Public Use
  Company Number: None

PATIENT
  Age: 79 Year
  Sex: Male

DRUGS (2)
  1. WARFARIN [Suspect]
     Active Substance: WARFARIN
     Indication: ATRIAL FIBRILLATION
     Route: 048
     Dates: start: 20171127, end: 20180222
  2. ASPIRIN. [Suspect]
     Active Substance: ASPIRIN
     Route: 048
     Dates: start: 20161105

REACTIONS (4)
  - Soft tissue swelling [None]
  - Spontaneous haematoma [None]
  - Anticoagulation drug level above therapeutic [None]
  - Muscle haemorrhage [None]

NARRATIVE: CASE EVENT DATE: 20180220
